FAERS Safety Report 6268138-4 (Version None)
Quarter: 2009Q3

REPORT INFORMATION
  Report Type: 
  Country: None (occurrence: None)
  Receive Date: 20090715
  Receipt Date: 20090707
  Transmission Date: 20100115
  Serious: Yes (Hospitalization)
  Sender: FDA-Public Use
  Company Number: US-BIOGENIDEC-2009BI013167

PATIENT
  Age: 51 Year
  Sex: Female

DRUGS (2)
  1. AVONEX [Suspect]
     Indication: MULTIPLE SCLEROSIS
     Route: 030
     Dates: start: 20001117, end: 20060605
  2. AVONEX [Suspect]
     Route: 030
     Dates: start: 20070727

REACTIONS (11)
  - AUTONOMIC NERVOUS SYSTEM IMBALANCE [None]
  - BALANCE DISORDER [None]
  - DYSURIA [None]
  - FALL [None]
  - GASTROINTESTINAL DISORDER [None]
  - HEAD INJURY [None]
  - MUSCLE SPASTICITY [None]
  - ORTHOSTATIC HYPOTENSION [None]
  - PERONEAL NERVE PALSY [None]
  - SKIN LACERATION [None]
  - URINARY RETENTION [None]
